FAERS Safety Report 4269401-9 (Version None)
Quarter: 2004Q1

REPORT INFORMATION
  Report Type: 
  Country: None (occurrence: None)
  Receive Date: 20040109
  Receipt Date: 20031225
  Transmission Date: 20041129
  Serious: Yes (Hospitalization)
  Sender: FDA-Public Use
  Company Number: RS004072-J

PATIENT
  Age: 60 Year
  Sex: Female

DRUGS (6)
  1. RABEPRAZOLE SODIUM [Suspect]
     Indication: GASTRIC ULCER
     Dosage: 10 MG, 1 IN 1 D, ORAL
     Route: 048
     Dates: start: 20031031
  2. COLIOPAN (BUTROPIUM BROMIDE) [Concomitant]
     Indication: GASTRIC ULCER
     Dosage: 15 MG, ORAL
     Route: 048
     Dates: start: 20031031
  3. STROCAIN (OXETACAINE) [Suspect]
     Indication: GASTRIC ULCER
     Dosage: 15 MG, ORAL
     Route: 048
     Dates: start: 20031031, end: 20031106
  4. GASTROM (ECABET MONOSODIUM) [Concomitant]
     Indication: GASTRIC ULCER
     Dosage: 3 GM, ORAL
     Route: 048
     Dates: start: 20031031, end: 20031106
  5. AMLODIPINE BESYLATE [Concomitant]
  6. TENORMIN [Concomitant]

REACTIONS (6)
  - HAEMODIALYSIS [None]
  - ISCHAEMIA [None]
  - NEPHROTIC SYNDROME [None]
  - PULMONARY OEDEMA [None]
  - RENAL ARTERY STENOSIS [None]
  - RENAL TUBULAR NECROSIS [None]
